FAERS Safety Report 8537155-3 (Version None)
Quarter: 2012Q3

REPORT INFORMATION
  Report Type: 
  Country: None (occurrence: None)
  Receive Date: 20120725
  Receipt Date: 20120716
  Transmission Date: 20120928
  Serious: Yes (Other)
  Sender: FDA-Public Use
  Company Number: US-009507513-1204USA02199

PATIENT

DRUGS (2)
  1. FOSAMAX [Suspect]
     Dosage: UNK
     Route: 048
     Dates: start: 20060101, end: 20110601
  2. HORMONES (UNSPECIFIED) [Concomitant]
     Indication: OSTEOPOROSIS
     Dosage: UNK
     Dates: start: 20020101, end: 20120101

REACTIONS (4)
  - ROAD TRAFFIC ACCIDENT [None]
  - OSTEONECROSIS OF JAW [None]
  - FOREIGN BODY [None]
  - HYPERTENSION [None]
